FAERS Safety Report 7133025-6 (Version None)
Quarter: 2010Q4

REPORT INFORMATION
  Report Type: 
  Country: None (occurrence: None)
  Receive Date: 20101202
  Receipt Date: 20101118
  Transmission Date: 20110411
  Serious: Yes (Hospitalization)
  Sender: FDA-Public Use
  Company Number: A0882826A

PATIENT
  Age: 59 Year
  Sex: Female
  Weight: 53.1 kg

DRUGS (3)
  1. LAPATINIB [Suspect]
     Indication: BREAST CANCER METASTATIC
     Dosage: 1000MG PER DAY
     Route: 048
     Dates: start: 20080530
  2. PACLITAXEL [Suspect]
     Indication: BREAST CANCER METASTATIC
     Dosage: 70MGM2 CYCLIC
     Route: 042
     Dates: start: 20080530
  3. TRASTUZUMAB [Suspect]
     Indication: BREAST CANCER METASTATIC
     Dosage: 4MGK WEEKLY
     Route: 042
     Dates: start: 20080530

REACTIONS (7)
  - ABDOMINAL PAIN [None]
  - BREAST CANCER METASTATIC [None]
  - COLONIC OBSTRUCTION [None]
  - DIARRHOEA [None]
  - DISEASE PROGRESSION [None]
  - NAUSEA [None]
  - VOMITING [None]
